FAERS Safety Report 4596056-6 (Version None)
Quarter: 2005Q1

REPORT INFORMATION
  Report Type: 
  Country: None (occurrence: None)
  Receive Date: 20050225
  Receipt Date: 20050211
  Transmission Date: 20050727
  Serious: No
  Sender: FDA-Public Use
  Company Number: 2005UW02707

PATIENT
  Age: 52 Year
  Sex: Female

DRUGS (4)
  1. SYMBICORT TURBUHALER ^DRACO^ [Suspect]
     Indication: ASTHMA
     Dosage: 200 MG BID IH
     Route: 055
     Dates: start: 20040501
  2. FIORINAL [Concomitant]
  3. LOSEC [Concomitant]
  4. BRICANYL [Concomitant]

REACTIONS (2)
  - ARTERITIS [None]
  - GLAUCOMA [None]
